FAERS Safety Report 5703531-7 (Version None)
Quarter: 2008Q2

REPORT INFORMATION
  Report Type: 
  Country: None (occurrence: None)
  Receive Date: 20080411
  Receipt Date: 20080331
  Transmission Date: 20081010
  Serious: Yes (Other)
  Sender: FDA-Public Use
  Company Number: US-PFIZER INC-2008030470

PATIENT
  Sex: Female
  Weight: 90.7 kg

DRUGS (7)
  1. NEURONTIN [Suspect]
     Indication: FIBROMYALGIA
  2. LYRICA [Suspect]
     Indication: FIBROMYALGIA
  3. GLIPIZIDE [Concomitant]
  4. SITAGLIPTIN [Concomitant]
  5. UNIVASC [Concomitant]
  6. LORCET [Concomitant]
  7. XANAX [Concomitant]

REACTIONS (1)
  - DISSOCIATION [None]
